FAERS Safety Report 6527039-4 (Version None)
Quarter: 2009Q4

REPORT INFORMATION
  Report Type: 
  Country: None (occurrence: None)
  Receive Date: 20091229
  Receipt Date: 20091214
  Transmission Date: 20100525
  Serious: Yes (Other)
  Sender: FDA-Public Use
  Company Number: 2009AP005052

PATIENT
  Age: 45 Year
  Sex: Male

DRUGS (2)
  1. RISPERIDONE [Suspect]
     Indication: SCHIZOPHRENIA
     Dosage: 6 MG; PO; QD
     Route: 048
  2. RISPERIDONE [Concomitant]

REACTIONS (3)
  - CONDITION AGGRAVATED [None]
  - MALAISE [None]
  - SCHIZOPHRENIA [None]
